FAERS Safety Report 17529726 (Version 1)
Quarter: 2020Q1

REPORT INFORMATION
  Report Type: Spontaneous
  Country: MX (occurrence: MX)
  Receive Date: 20200312
  Receipt Date: 20200312
  Transmission Date: 20200409
  Serious: Yes (Other)
  Sender: FDA-Public Use
  Company Number: MX-UCBSA-2020010220

PATIENT
  Age: 54 Year
  Sex: Female

DRUGS (1)
  1. CIMZIA [Suspect]
     Active Substance: CERTOLIZUMAB PEGOL
     Indication: PSORIATIC ARTHROPATHY
     Dosage: UNK
     Dates: start: 201808, end: 201912

REACTIONS (1)
  - Pulmonary tuberculosis [Not Recovered/Not Resolved]

NARRATIVE: CASE EVENT DATE: 201912
